FAERS Safety Report 7059794-1 (Version None)
Quarter: 2010Q4

REPORT INFORMATION
  Report Type: 
  Country: None (occurrence: None)
  Receive Date: 20101025
  Receipt Date: 20101018
  Transmission Date: 20110411
  Serious: Yes (Disabling, Other)
  Sender: FDA-Public Use
  Company Number: GB-PFIZER INC-2010048672

PATIENT
  Age: 64 Year
  Sex: Male
  Weight: 107 kg

DRUGS (7)
  1. VFEND [Suspect]
     Indication: BRONCHOPULMONARY ASPERGILLOSIS
     Dosage: 200 MG, 2X/DAY
     Route: 048
     Dates: start: 20100201, end: 20100507
  2. VFEND [Interacting]
  3. VFEND [Interacting]
     Indication: BRONCHOPULMONARY ASPERGILLOSIS ALLERGIC
  4. CELEBREX [Interacting]
     Indication: ARTHRITIS
     Dosage: 400 MG, 1X/DAY
     Dates: start: 20100201
  5. CELEBREX [Interacting]
     Indication: PAIN
  6. TRAMADOL [Interacting]
     Indication: PAIN
  7. KETOPROFEN [Interacting]
     Dosage: UNK
     Dates: end: 20100201

REACTIONS (9)
  - CONSTIPATION [None]
  - DIARRHOEA [None]
  - DRUG INEFFECTIVE [None]
  - DRUG INTERACTION [None]
  - FEELING ABNORMAL [None]
  - HYPOAESTHESIA [None]
  - NEUROPATHY PERIPHERAL [None]
  - THERAPEUTIC RESPONSE UNEXPECTED [None]
  - VOMITING [None]
